FAERS Safety Report 11351240 (Version 1)
Quarter: 2015Q3

REPORT INFORMATION
  Report Type: Spontaneous
  Country: US (occurrence: US)
  Receive Date: 20150807
  Receipt Date: 20150807
  Transmission Date: 20151125
  Serious: No
  Sender: FDA-Public Use
  Company Number: US-JNJFOC-20140609995

PATIENT
  Age: 52 Year
  Sex: Female
  Weight: 63.5 kg

DRUGS (2)
  1. MENS ROGAINE EXTRA STRENGTH [Suspect]
     Active Substance: MINOXIDIL
     Indication: ALOPECIA
     Dosage: DOSAGE: 1 CAPFUL
     Route: 061
  2. PREMPRO [Concomitant]
     Active Substance: ESTROGENS, CONJUGATED\MEDROXYPROGESTERONE ACETATE
     Indication: HORMONE REPLACEMENT THERAPY
     Route: 065
     Dates: start: 201311

REACTIONS (7)
  - Skin tightness [Unknown]
  - Gait disturbance [Unknown]
  - Discomfort [Unknown]
  - Wrong patient received medication [Unknown]
  - Dyspnoea [Unknown]
  - Abdominal distension [Unknown]
  - Muscle tightness [Unknown]
